FAERS Safety Report 8518096-4 (Version None)
Quarter: 2012Q3

REPORT INFORMATION
  Report Type: 
  Country: None (occurrence: None)
  Receive Date: 20120718
  Receipt Date: 20110923
  Transmission Date: 20120928
  Serious: Yes (Other)
  Sender: FDA-Public Use
  Company Number: US-BRISTOL-MYERS SQUIBB COMPANY-16091993

PATIENT
  Age: 50 Year
  Sex: Male

DRUGS (1)
  1. COUMADIN [Suspect]
     Dosage: 2.5MG FOR FIVE DAYS, 5MG FOR 2 DAYS.

REACTIONS (1)
  - HAEMATOMA [None]
